FAERS Safety Report 13381128 (Version 1)
Quarter: 2017Q1

REPORT INFORMATION
  Report Type: Spontaneous
  Country: US (occurrence: US)
  Receive Date: 20170328
  Receipt Date: 20170328
  Transmission Date: 20170429
  Serious: No
  Sender: FDA-Public Use
  Company Number: None

PATIENT
  Age: 79 Year
  Sex: Female

DRUGS (4)
  1. OLANZAPINE. [Suspect]
     Active Substance: OLANZAPINE
     Indication: MENTAL DISORDER
     Dosage: 30PILLS. 1 X DAILY AT NIGHT
     Route: 048
     Dates: start: 20170224
  2. TYLENOL [Concomitant]
     Active Substance: ACETAMINOPHEN
  3. HERBAL SLEEP [Concomitant]
  4. MELOXICAM. [Concomitant]
     Active Substance: MELOXICAM

REACTIONS (3)
  - Product size issue [None]
  - Product identification number issue [None]
  - Product colour issue [None]

NARRATIVE: CASE EVENT DATE: 20170303
